FAERS Safety Report 9813063 (Version 2)
Quarter: 2014Q1

REPORT INFORMATION
  Report Type: Spontaneous
  Country: GB (occurrence: GB)
  Receive Date: 20140113
  Receipt Date: 20140113
  Transmission Date: 20141002
  Serious: Yes (Hospitalization)
  Sender: FDA-Public Use
  Company Number: GB-TEVA-427544ISR

PATIENT
  Age: 27 Year
  Sex: Female

DRUGS (2)
  1. AMOXICILLIN [Suspect]
  2. SULFASALAZINE [Suspect]
     Indication: SERONEGATIVE ARTHRITIS

REACTIONS (2)
  - Drug reaction with eosinophilia and systemic symptoms [Recovering/Resolving]
  - Condition aggravated [Recovering/Resolving]
